FAERS Safety Report 7396500-5 (Version None)
Quarter: 2011Q2

REPORT INFORMATION
  Report Type: 
  Country: None (occurrence: None)
  Receive Date: 20110406
  Receipt Date: 20110329
  Transmission Date: 20111010
  Serious: Yes (Hospitalization)
  Sender: FDA-Public Use
  Company Number: US-ALEXION PHARMACEUTICALS INC.-A201100441

PATIENT
  Sex: Male
  Weight: 72.5 kg

DRUGS (4)
  1. SOLIRIS [Suspect]
     Dosage: 900 MG, Q2W
     Route: 042
     Dates: start: 20100224
  2. POTASSIUM CHLORIDE [Concomitant]
     Indication: HYPOKALAEMIA
     Dosage: 20 MEQ, BID
     Route: 048
     Dates: start: 20100101
  3. SOLIRIS [Suspect]
     Indication: PAROXYSMAL NOCTURNAL HAEMOGLOBINURIA
     Dosage: 600 MG, QW
     Route: 042
     Dates: start: 20100128, end: 20100201
  4. FOLIC ACID [Concomitant]
     Indication: HAEMOLYTIC ANAEMIA
     Dosage: 1 MG, QD
     Route: 048
     Dates: start: 20020101

REACTIONS (3)
  - CHILLS [None]
  - PRODUCTIVE COUGH [None]
  - PYREXIA [None]
